FAERS Safety Report 15949889 (Version 2)
Quarter: 2019Q1

REPORT INFORMATION
  Report Type: Spontaneous
  Country: SE (occurrence: SE)
  Receive Date: 20190212
  Receipt Date: 20190221
  Transmission Date: 20190417
  Serious: Yes (Death, Hospitalization, Other)
  Sender: FDA-Public Use
  Company Number: SE-009507513-99127296

PATIENT
  Age: 82 Year
  Sex: Female

DRUGS (3)
  1. TIENAM [Suspect]
     Active Substance: CILASTATIN SODIUM\IMIPENEM
     Indication: UNEVALUABLE EVENT
     Dosage: FORMULATION: POWDER FOR SOLUTION FOR INFUSION
     Dates: start: 199907, end: 199907
  2. CLAFORAN [Suspect]
     Active Substance: CEFOTAXIME SODIUM
     Indication: UNEVALUABLE EVENT
     Dosage: UNK
     Dates: start: 199907, end: 199907
  3. IMIPENEM [Concomitant]
     Active Substance: IMIPENEM
     Indication: UNEVALUABLE EVENT

REACTIONS (1)
  - Pseudomembranous colitis [Fatal]

NARRATIVE: CASE EVENT DATE: 199907
